FAERS Safety Report 5428752-2 (Version None)
Quarter: 2007Q3

REPORT INFORMATION
  Report Type: 
  Country: None (occurrence: None)
  Receive Date: 20070827
  Receipt Date: 20070827
  Transmission Date: 20080115
  Serious: No
  Sender: FDA-Public Use
  Company Number: None

PATIENT
  Sex: Female
  Weight: 63.5036 kg

DRUGS (1)
  1. TOPROL-XL [Suspect]
     Indication: HYPERTENSION
     Dosage: 200 MG 1/2 TAB DAILY PO
     Route: 048
     Dates: start: 20051111, end: 20060426

REACTIONS (6)
  - CEREBROVASCULAR ACCIDENT [None]
  - INCORRECT DOSE ADMINISTERED [None]
  - MEDICATION ERROR [None]
  - RETINAL HAEMORRHAGE [None]
  - RETINAL OEDEMA [None]
  - VISUAL ACUITY REDUCED [None]
